FAERS Safety Report 18868826 (Version 3)
Quarter: 2021Q1

REPORT INFORMATION
  Report Type: Spontaneous
  Country: CO (occurrence: CO)
  Receive Date: 20210210
  Receipt Date: 20210322
  Transmission Date: 20210420
  Serious: Yes (Other)
  Sender: FDA-Public Use
  Company Number: CO-AMGEN-COLSP2020209366

PATIENT
  Age: 48 Year
  Sex: Female
  Weight: 75 kg

DRUGS (7)
  1. FOSAPREPITANT [Concomitant]
     Active Substance: FOSAPREPITANT
     Indication: OVARIAN CANCER STAGE III
     Dosage: 150 MILLIGRAM, QD
     Route: 042
     Dates: start: 20190401
  2. LIPOSOMAL DOXORUBICIN HCL [Concomitant]
     Active Substance: DOXORUBICIN HYDROCHLORIDE
     Indication: OVARIAN CANCER STAGE III
     Dosage: 55.8 MILLIGRAM, QD
     Route: 042
     Dates: start: 20190401
  3. CARBOPLATIN. [Concomitant]
     Active Substance: CARBOPLATIN
     Dosage: 464.4 MILLIGRAM, QD
     Route: 042
     Dates: start: 20210105
  4. ONDANSETRON [Concomitant]
     Active Substance: ONDANSETRON
     Indication: OVARIAN CANCER STAGE III
     Dosage: 16 MILLIGRAM, QD
     Route: 042
     Dates: start: 20190401
  5. CARBOPLATIN. [Concomitant]
     Active Substance: CARBOPLATIN
     Indication: OVARIAN CANCER STAGE III
     Dosage: 563 MILLIGRAM, QD
     Route: 042
     Dates: start: 20190401
  6. MVASI [Suspect]
     Active Substance: BEVACIZUMAB-AWWB
     Indication: OVARIAN CANCER STAGE III
     Dosage: 712.5 MILLIGRAM, QD
     Route: 042
     Dates: start: 20200511
  7. DEXAMETHASONE PHOSPHATE [Concomitant]
     Active Substance: DEXAMETHASONE PHOSPHATE
     Indication: OVARIAN CANCER STAGE III
     Dosage: 8 MILLIGRAM, QD
     Route: 042
     Dates: start: 20190401

REACTIONS (6)
  - Nasal congestion [Not Recovered/Not Resolved]
  - Ileostomy [Not Recovered/Not Resolved]
  - Insomnia [Recovered/Resolved]
  - Nasal dryness [Not Recovered/Not Resolved]
  - Off label use [Unknown]
  - Abdominal pain [Recovering/Resolving]

NARRATIVE: CASE EVENT DATE: 20200511
